FAERS Safety Report 14250613 (Version 2)
Quarter: 2017Q4

REPORT INFORMATION
  Report Type: Spontaneous
  Country: CA (occurrence: CA)
  Receive Date: 20171205
  Receipt Date: 20171221
  Transmission Date: 20180321
  Serious: Yes (Hospitalization, Other)
  Sender: FDA-Public Use
  Company Number: CA-AUROBINDO-AUR-APL-2017-44171

PATIENT
  Age: 40 Year
  Sex: Female
  Weight: 165 kg

DRUGS (1)
  1. AURO-TOPIRAMATE TABLET [Suspect]
     Active Substance: TOPIRAMATE
     Indication: MIGRAINE
     Dosage: 25 MG, TWO TIMES A DAY
     Route: 048

REACTIONS (4)
  - Vomiting [Recovered/Resolved]
  - Angle closure glaucoma [Recovered/Resolved]
  - Blindness [Recovered/Resolved]
  - Headache [Recovered/Resolved]
